FAERS Safety Report 5256557-4 (Version None)
Quarter: 2007Q1

REPORT INFORMATION
  Report Type: 
  Country: None (occurrence: None)
  Receive Date: 20070301
  Receipt Date: 20070215
  Transmission Date: 20070707
  Serious: Yes (Disabling, Other)
  Sender: FDA-Public Use
  Company Number: 153141USA

PATIENT
  Sex: Female

DRUGS (1)
  1. PROMETHAZINE HCL [Suspect]

REACTIONS (1)
  - UNEVALUABLE EVENT [None]
